FAERS Safety Report 8494394-8 (Version None)
Quarter: 2012Q2

REPORT INFORMATION
  Report Type: 
  Country: None (occurrence: None)
  Receive Date: 20120405
  Receipt Date: 20081217
  Transmission Date: 20120825
  Serious: Yes (Disabling)
  Sender: FDA-Public Use
  Company Number: PHEH2008US11185

PATIENT
  Sex: Female

DRUGS (1)
  1. RECLAST [Suspect]
     Dates: start: 20080701

REACTIONS (3)
  - PAIN IN JAW [None]
  - PAIN [None]
  - GAIT DISTURBANCE [None]
